FAERS Safety Report 5122560-8 (Version None)
Quarter: 2006Q4

REPORT INFORMATION
  Report Type: 
  Country: None (occurrence: None)
  Receive Date: 20061004
  Receipt Date: 20060921
  Transmission Date: 20070319
  Serious: Yes (Hospitalization, Other)
  Sender: FDA-Public Use
  Company Number: HQWYE016421SEP06

PATIENT
  Age: 76 Year
  Sex: Male

DRUGS (24)
  1. CORDARONE [Suspect]
     Dosage: 200 MG 1X PER 1 DAY ORAL
     Route: 048
     Dates: start: 20060603, end: 20060621
  2. AUGMENTAN ORAL (AMOXICILLIN TRIHYDRATE/CLAVULANATE POTASSIUM) [Concomitant]
  3. BISOPROLOL FUMARATE [Concomitant]
  4. CALCIPARINE [Concomitant]
  5. LASIX [Concomitant]
  6. LANSOPRAZOLE [Concomitant]
  7. COUMADIN [Concomitant]
  8. PENTOXIFYLLINE [Concomitant]
  9. CLONAZEPAM [Concomitant]
  10. PLAVIX [Concomitant]
  11. INSULATARD NPH HUMAN [Concomitant]
  12. XATRAL (ALFUZOSIN) [Concomitant]
  13. DAFALGAN (PARACETAMOL) [Concomitant]
  14. ALDACTONE [Concomitant]
  15. TRAMADOL HCL [Concomitant]
  16. ART 50 (DIACEREIN) [Concomitant]
  17. ARANESP [Concomitant]
  18. PREVISCAN (FLUINDIONE) [Concomitant]
  19. EQUANIL [Concomitant]
  20. FERROUS SULFATE TAB [Concomitant]
  21. CALCIDIA (CALCIUM CARBONATE) [Concomitant]
  22. SINTROM [Concomitant]
  23. TIAPRIDAL (TIAPRIDE) [Concomitant]
  24. LEVOTHYROXINE SODIUM [Concomitant]

REACTIONS (1)
  - LEUKOCYTOCLASTIC VASCULITIS [None]
